FAERS Safety Report 12782147 (Version 1)
Quarter: 2016Q3

REPORT INFORMATION
  Report Type: Spontaneous
  Country: US (occurrence: None)
  Receive Date: 20160924
  Receipt Date: 20160924
  Transmission Date: 20161109
  Serious: Yes (Hospitalization)
  Sender: FDA-Public Use
  Company Number: None

PATIENT
  Age: 54 Year
  Sex: Male
  Weight: 124 kg

DRUGS (2)
  1. DEFACTINIB [Suspect]
     Active Substance: DEFACTINIB
     Indication: NEUROENDOCRINE TUMOUR
     Route: 048
     Dates: start: 20160425, end: 20160907
  2. PEMBROLIZUMAB. [Suspect]
     Active Substance: PEMBROLIZUMAB
     Indication: NEUROENDOCRINE TUMOUR
     Dosage: 200MG EVERY 21 DAYS IVPB
     Dates: start: 20160425, end: 20160918

REACTIONS (3)
  - Dyspnoea [None]
  - Asthenia [None]
  - Arthralgia [None]

NARRATIVE: CASE EVENT DATE: 20160908
